FAERS Safety Report 15673474 (Version 1)
Quarter: 2018Q4

REPORT INFORMATION
  Report Type: Spontaneous
  Country: IT (occurrence: IT)
  Receive Date: 20181129
  Receipt Date: 20181129
  Transmission Date: 20190205
  Serious: Yes (Hospitalization, Other)
  Sender: FDA-Public Use
  Company Number: IT-SUNOVION-2018SUN004658

PATIENT

DRUGS (7)
  1. LATUDA [Suspect]
     Active Substance: LURASIDONE HYDROCHLORIDE
     Indication: DRUG ABUSE
     Dosage: 74 MG, UNK
     Route: 048
     Dates: start: 20181006, end: 20181006
  2. CLOZAPINE. [Suspect]
     Active Substance: CLOZAPINE
     Indication: DRUG ABUSE
     Dosage: UNK
     Route: 048
     Dates: start: 20181006, end: 20181006
  3. LANSOX [Concomitant]
     Active Substance: LANSOPRAZOLE
     Dosage: UNK
  4. TRITTICO [Suspect]
     Active Substance: TRAZODONE HYDROCHLORIDE
     Indication: DRUG ABUSE
     Dosage: 100 MG, UNK
     Route: 048
     Dates: start: 20181006, end: 20181006
  5. LAMICTAL [Suspect]
     Active Substance: LAMOTRIGINE
     Indication: DRUG ABUSE
     Dosage: UNK
     Route: 048
     Dates: start: 20181006, end: 20181006
  6. HALDOL [Suspect]
     Active Substance: HALOPERIDOL
     Indication: DRUG ABUSE
     Dosage: UNK
     Route: 048
     Dates: start: 20181006, end: 20181006
  7. LAROXYL [Suspect]
     Active Substance: AMITRIPTYLINE HYDROCHLORIDE
     Indication: DRUG ABUSE
     Dosage: UNK
     Route: 048
     Dates: start: 20181006, end: 20181006

REACTIONS (3)
  - Sopor [Unknown]
  - Drug abuse [Unknown]
  - Agitation [Unknown]

NARRATIVE: CASE EVENT DATE: 20181006
